FAERS Safety Report 10469692 (Version 2)
Quarter: 2014Q4

REPORT INFORMATION
  Report Type: Spontaneous
  Country: US (occurrence: US)
  Receive Date: 20140923
  Receipt Date: 20141002
  Transmission Date: 20150528
  Serious: Yes (Hospitalization)
  Sender: FDA-Public Use
  Company Number: US-JNJFOC-20140914170

PATIENT
  Age: 50 Year
  Sex: Male

DRUGS (1)
  1. XARELTO [Suspect]
     Active Substance: RIVAROXABAN
     Indication: PULMONARY EMBOLISM
     Route: 048
     Dates: end: 20140806

REACTIONS (13)
  - Road traffic accident [Unknown]
  - Large intestinal haemorrhage [Recovering/Resolving]
  - Contusion [Recovering/Resolving]
  - Mesenteric haematoma [Recovering/Resolving]
  - Femur fracture [Recovering/Resolving]
  - Limb fracture [Recovering/Resolving]
  - Haemoglobin decreased [Recovering/Resolving]
  - Haematoma [Recovering/Resolving]
  - Joint dislocation [Recovering/Resolving]
  - Pelvic fracture [Recovering/Resolving]
  - Splenic injury [Recovering/Resolving]
  - Traumatic liver injury [Recovering/Resolving]
  - Malaise [Unknown]

NARRATIVE: CASE EVENT DATE: 20140806
